FAERS Safety Report 14141883 (Version 1)
Quarter: 2017Q4

REPORT INFORMATION
  Report Type: Report from Study
  Country: US (occurrence: US)
  Receive Date: 20171030
  Receipt Date: 20171030
  Transmission Date: 20180321
  Serious: Yes (Death, Hospitalization, Other)
  Sender: FDA-Public Use
  Company Number: US-BAYER-2017-162791

PATIENT
  Age: 56 Year
  Sex: Female
  Weight: 56.69 kg

DRUGS (5)
  1. TYVASO [Concomitant]
     Active Substance: TREPROSTINIL
  2. LETAIRIS [Concomitant]
     Active Substance: AMBRISENTAN
  3. ADEMPAS [Suspect]
     Active Substance: RIOCIGUAT
     Indication: PULMONARY ARTERIAL HYPERTENSION
     Dosage: 1 MG, TID
     Route: 048
  4. AMLODIPINE [Concomitant]
     Active Substance: AMLODIPINE BESYLATE
  5. ADEMPAS [Suspect]
     Active Substance: RIOCIGUAT
     Indication: PULMONARY ARTERIAL HYPERTENSION
     Dosage: UNK
     Dates: start: 20170113

REACTIONS (7)
  - Death [Fatal]
  - Post-traumatic pain [Unknown]
  - Oesophageal oedema [Unknown]
  - Dyspnoea [Unknown]
  - Oesophageal injury [Unknown]
  - Limb injury [Unknown]
  - Post-traumatic pain [Unknown]

NARRATIVE: CASE EVENT DATE: 201708
